FAERS Safety Report 20027514 (Version 1)
Quarter: 2021Q4

REPORT INFORMATION
  Report Type: Spontaneous
  Country: GB (occurrence: GB)
  Receive Date: 20211103
  Receipt Date: 20211103
  Transmission Date: 20220304
  Serious: Yes (Life-Threatening)
  Sender: FDA-Public Use
  Company Number: GB-MHRA-EYC 00264003

PATIENT
  Age: 16 Year
  Weight: 53.4 kg

DRUGS (1)
  1. ISOTRETINOIN [Suspect]
     Active Substance: ISOTRETINOIN
     Indication: Acne
     Dosage: 20 MG OD FOR 21 DAYS THEN WITHELD DUE TO RAISED ALT, THEN 10 MG OD FOR 31 DAYS
     Route: 048
     Dates: start: 20210317, end: 20210608

REACTIONS (1)
  - Suicidal ideation [Not Recovered/Not Resolved]

NARRATIVE: CASE EVENT DATE: 20210601
